FAERS Safety Report 10251846 (Version 1)
Quarter: 2014Q2

REPORT INFORMATION
  Report Type: Spontaneous
  Country: US (occurrence: US)
  Receive Date: 20140623
  Receipt Date: 20140623
  Transmission Date: 20141212
  Serious: Yes (Other)
  Sender: FDA-Public Use
  Company Number: US-SHIRE-US201403107

PATIENT
  Age: 16 Year
  Sex: Female

DRUGS (2)
  1. CINRYZE [Suspect]
     Indication: HEREDITARY ANGIOEDEMA
     Dosage: 1000 UNITS EVERY 3 DAYS
     Route: 042
     Dates: start: 20140522
  2. CINRYZE [Suspect]
     Indication: PROPHYLAXIS

REACTIONS (2)
  - Convulsion [Unknown]
  - Anxiety [Unknown]
